FAERS Safety Report 6932596-X (Version None)
Quarter: 2010Q3

REPORT INFORMATION
  Report Type: 
  Country: None (occurrence: None)
  Receive Date: 20100819
  Receipt Date: 20100813
  Transmission Date: 20110219
  Serious: Yes (Hospitalization)
  Sender: FDA-Public Use
  Company Number: US-BRISTOL-MYERS SQUIBB COMPANY-15241102

PATIENT
  Age: 49 Year
  Sex: Male

DRUGS (8)
  1. REYATAZ [Suspect]
     Dates: start: 20080201
  2. EPZICOM [Suspect]
  3. TENOFOVIR [Suspect]
  4. RITONAVIR [Suspect]
  5. VALTREX [Concomitant]
  6. KEPPRA [Concomitant]
  7. ASPIRIN [Concomitant]
  8. CYMBALTA [Concomitant]

REACTIONS (4)
  - DRUG SCREEN POSITIVE [None]
  - NEPHROLITHIASIS [None]
  - RENAL FAILURE ACUTE [None]
  - SUICIDAL IDEATION [None]
